FAERS Safety Report 6935972-4 (Version None)
Quarter: 2010Q3

REPORT INFORMATION
  Report Type: 
  Country: None (occurrence: None)
  Receive Date: 20100823
  Receipt Date: 20100811
  Transmission Date: 20110219
  Serious: No
  Sender: FDA-Public Use
  Company Number: US-JNJFOC-20100804541

PATIENT
  Sex: Female
  Weight: 77.11 kg

DRUGS (4)
  1. FENTANYL CITRATE [Suspect]
     Indication: PAIN
     Route: 062
  2. FENTANYL MATRIX TRANSDERMAL SYSTEM [Suspect]
     Indication: PAIN
     Route: 062
  3. OXYCODONE [Concomitant]
     Indication: PAIN
     Route: 048
  4. ALL OTHER THERAPEUTIC DRUGS [Concomitant]
     Route: 065

REACTIONS (3)
  - INAPPROPRIATE SCHEDULE OF DRUG ADMINISTRATION [None]
  - TREMOR [None]
  - WITHDRAWAL SYNDROME [None]
